FAERS Safety Report 26043334 (Version 2)
Quarter: 2025Q4

REPORT INFORMATION
  Report Type: Spontaneous
  Country: US (occurrence: US)
  Receive Date: 20251113
  Receipt Date: 20251224
  Transmission Date: 20260118
  Serious: Yes (Death, Other)
  Sender: ARDELYX
  Company Number: US-ARDELYX-2025ARDX008339

PATIENT
  Age: 69 Year
  Sex: Male

DRUGS (1)
  1. IBSRELA [Suspect]
     Active Substance: TENAPANOR HYDROCHLORIDE
     Indication: Product used for unknown indication
     Dosage: UNK
     Route: 065

REACTIONS (1)
  - Cardio-respiratory arrest [Fatal]

NARRATIVE: CASE EVENT DATE: 20240518
